FAERS Safety Report 14031253 (Version 1)
Quarter: 2017Q4

REPORT INFORMATION
  Report Type: Other
  Country: None (occurrence: US)
  Receive Date: 20171003
  Receipt Date: 20171003
  Transmission Date: 20180321
  Serious: Yes (Other)
  Sender: FDA-Public Use
  Company Number: US-ALSI-201700319

PATIENT
  Age: 58 Year
  Sex: Male
  Weight: 105 kg

DRUGS (5)
  1. OXYGEN. [Concomitant]
     Active Substance: OXYGEN
  2. MIDAZOLAM [Concomitant]
     Active Substance: MIDAZOLAM HYDROCHLORIDE
  3. NITROUS OXIDE. [Concomitant]
     Active Substance: NITROUS OXIDE
  4. MORPHINE [Concomitant]
     Active Substance: MORPHINE
  5. NITROGEN. [Suspect]
     Active Substance: NITROGEN
     Indication: CRYOTHERAPY
     Route: 036

REACTIONS (2)
  - Off label use [Recovered/Resolved]
  - Air embolism [Recovered/Resolved]
